FAERS Safety Report 19906881 (Version 1)
Quarter: 2021Q4

REPORT INFORMATION
  Report Type: Spontaneous
  Country: GB (occurrence: GB)
  Receive Date: 20211001
  Receipt Date: 20211001
  Transmission Date: 20220303
  Serious: Yes (Hospitalization)
  Sender: FDA-Public Use
  Company Number: GB-ASSERTIO THERAPEUTICS, INC.-GB-2021AST000166

PATIENT
  Age: 72 Year
  Sex: Female

DRUGS (1)
  1. INDOMETHACIN [Suspect]
     Active Substance: INDOMETHACIN
     Indication: Pain
     Dosage: UNK, QD

REACTIONS (1)
  - Spontaneous haematoma [Recovered/Resolved]
